FAERS Safety Report 6154773-0 (Version None)
Quarter: 2009Q2

REPORT INFORMATION
  Report Type: 
  Country: None (occurrence: None)
  Receive Date: 20090414
  Receipt Date: 20090402
  Transmission Date: 20091009
  Serious: Yes (Other)
  Sender: FDA-Public Use
  Company Number: PHHY2009US12456

PATIENT
  Age: 19 Year
  Sex: Female

DRUGS (3)
  1. CARBAMAZEPINE [Suspect]
     Indication: GRAND MAL CONVULSION
  2. PHENYTOIN [Concomitant]
  3. GABAPENTIN [Concomitant]

REACTIONS (6)
  - AUTOMATISM [None]
  - CONVULSION [None]
  - ELECTROENCEPHALOGRAM ABNORMAL [None]
  - HYPOKINESIA [None]
  - MYOCLONIC EPILEPSY [None]
  - MYOCLONUS [None]
